FAERS Safety Report 23888310 (Version 2)
Quarter: 2024Q3

REPORT INFORMATION
  Report Type: Spontaneous
  Country: DE (occurrence: DE)
  Receive Date: 20240523
  Receipt Date: 20240703
  Transmission Date: 20241016
  Serious: Yes (Other)
  Sender: MYLAN
  Company Number: DE-PROCTER+GAMBLE-PH24003954

PATIENT
  Age: 89 Year
  Sex: Female
  Weight: 50 kg

DRUGS (14)
  1. ZOLPIDEM [Suspect]
     Active Substance: ZOLPIDEM TARTRATE
     Indication: Product used for unknown indication
     Dosage: 10 TABLET- ZOLPIDEM 10, TOTAL 100MG
     Route: 048
  2. SIMVASTATIN [Suspect]
     Active Substance: SIMVASTATIN
     Indication: Product used for unknown indication
     Dosage: 3 DOSAGE FORM, QD (3 TABLET, 1 /DAY (0-0-1 X 3 TABLET)- SIMVASTATIN 20)
     Route: 048
  3. VERAPAMIL [Suspect]
     Active Substance: VERAPAMIL HYDROCHLORIDE
     Indication: Product used for unknown indication
     Dosage: 3 DOSAGE FORM, QD (3 TABLET, 1 /DAY (1-0-0 X 3 TABLETS)- VERAPAMIL 40)
     Route: 048
  4. PANTOPRAZOLE [Suspect]
     Active Substance: PANTOPRAZOLE
     Indication: Product used for unknown indication
     Dosage: 3 DOSAGE FORM, QD (3 TABLET, 1 /DAY (1-0-0 X 3 TABLETS)- PANTOPRAZOLE 40)
     Route: 048
  5. MELPERONE [Suspect]
     Active Substance: MELPERONE
     Indication: Product used for unknown indication
     Dosage: 1.5 DOSAGE FORM, QD (1.5 TABLET, BEDTIME (0-0-0-1/2 X 3 TABLETS)- MELPERONE 25)
     Route: 048
  6. METAMIZOLE [Suspect]
     Active Substance: METAMIZOLE
     Indication: Product used for unknown indication
     Dosage: 3 TABLET, (PRN MEDICATION)- METAMIZOLE 500
     Route: 048
  7. VALERIAN [Suspect]
     Active Substance: VALERIAN
     Indication: Product used for unknown indication
     Dosage: 3 TABLET, BEDTIME (0-0-0-1 X 3 TABLETS)
     Route: 048
  8. CHOLECALCIFEROL\CHOLESTEROL [Suspect]
     Active Substance: CHOLECALCIFEROL\CHOLESTEROL
     Indication: Vitamin supplementation
     Dosage: 3 TABLET, 1 /DAY (0-1-0 X 3 TABLETS)
     Route: 048
  9. TILIDINE [Suspect]
     Active Substance: TILIDINE
     Indication: Product used for unknown indication
     Dosage: 12 DOSAGE FORM, QD (6 TABLET, 2 /DAY (1-0-1 X 3 TABLETS)- TILIDINE 50/4)
     Route: 048
  10. LEVOTHYROXINE SODIUM\LIOTHYRONINE SODIUM [Suspect]
     Active Substance: LEVOTHYROXINE SODIUM\LIOTHYRONINE SODIUM
     Indication: Product used for unknown indication
     Dosage: 3 DOSAGE FORM, QD (3 TABLET, 1 /DAY (1-0-0 X 3 TABLETS)- NOVOTHYRAL 75)
     Route: 048
  11. SODIUM BICARBONATE\SODIUM PHOSPHATE, MONOBASIC, ANHYDROUS [Suspect]
     Active Substance: SODIUM BICARBONATE\SODIUM PHOSPHATE, MONOBASIC, ANHYDROUS
     Indication: Product used for unknown indication
     Dosage: 3 DOSAGE FORM, PRN (3 TABLET, (PRN MEDICATION))
     Route: 048
  12. MOVICOL [Suspect]
     Active Substance: POLYETHYLENE GLYCOL 3350\POTASSIUM CHLORIDE\SODIUM BICARBONATE\SODIUM CHLORIDE
     Indication: Product used for unknown indication
     Dosage: 3 DOSAGE FORM, PRN (3 TABLET, (PRN MEDICATION)- MOVICOL)
     Route: 048
  13. VALSARTAN [Suspect]
     Active Substance: VALSARTAN
     Indication: Product used for unknown indication
     Dosage: 6 DOSAGE FORM, BID (6 TABLET, 2 /DAY, (1-0-1 X 3 TABLETS)- VALSACOR 160 MG)
     Route: 048
  14. CYANOCOBALAMIN\FOLIC ACID\PYRIDOXINE HYDROCHLORIDE [Suspect]
     Active Substance: CYANOCOBALAMIN\FOLIC ACID\PYRIDOXINE HYDROCHLORIDE
     Indication: Product used for unknown indication
     Dosage: 3 DOSAGE FORM, QD (3 TABLET, 1 /DAY (1-0-0 X 3 TABLETS)- MEDYN FORTE)
     Route: 048

REACTIONS (6)
  - Suicidal ideation [Unknown]
  - Disorientation [Unknown]
  - Haemodynamic instability [Recovered/Resolved]
  - Somnolence [Unknown]
  - Intentional overdose [Unknown]
  - Intentional product misuse [Unknown]
